FAERS Safety Report 9051534 (Version 1)
Quarter: 2013Q1

REPORT INFORMATION
  Report Type: Spontaneous
  Country: US (occurrence: US)
  Receive Date: 20130207
  Receipt Date: 20130207
  Transmission Date: 20140127
  Serious: No
  Sender: FDA-Public Use
  Company Number: US-009507513-1301USA014177

PATIENT
  Age: 79 Year
  Sex: Female
  Weight: 36.28 kg

DRUGS (7)
  1. SINEMET [Suspect]
     Indication: PARKINSON^S DISEASE
     Dosage: 25/100 MG (1/2 TAB), TID
     Route: 048
     Dates: start: 2012
  2. JAKAFI [Suspect]
     Indication: MYELOFIBROSIS
     Dosage: 10 MG, Q12H
     Route: 048
     Dates: start: 20120305, end: 20120423
  3. ASCORBIC ACID [Concomitant]
  4. ASPIRIN [Concomitant]
  5. OS-CAL D [Concomitant]
  6. ZYRTEC [Concomitant]
  7. HORSE CHESTNUT [Concomitant]

REACTIONS (3)
  - Lyme disease [Unknown]
  - Dizziness [Recovered/Resolved]
  - Rash [Unknown]
